FAERS Safety Report 20828301 (Version 1)
Quarter: 2022Q2

REPORT INFORMATION
  Report Type: Report from Study
  Country: US (occurrence: US)
  Receive Date: 20220513
  Receipt Date: 20220513
  Transmission Date: 20220720
  Serious: Yes (Hospitalization, Other)
  Sender: FDA-Public Use
  Company Number: US-TEVA-2020-US-1215224

PATIENT
  Age: 32 Year
  Sex: Female

DRUGS (4)
  1. CLOZAPINE [Suspect]
     Active Substance: CLOZAPINE
     Indication: Schizophrenia
     Dosage: 325 MILLIGRAM DAILY;
     Route: 065
  2. CLOZAPINE [Suspect]
     Active Substance: CLOZAPINE
     Dosage: 300 MILLIGRAM DAILY; DISINTEGRATING TABLET
     Route: 065
  3. LEXAPRO [Concomitant]
     Active Substance: ESCITALOPRAM OXALATE
     Route: 065
  4. LORAZEPAM [Concomitant]
     Active Substance: LORAZEPAM
     Dosage: LORAZEPAM 1MG AS NEEDED
     Route: 065

REACTIONS (6)
  - White blood cell count decreased [Unknown]
  - Hallucination, visual [Unknown]
  - Delusion [Unknown]
  - Asocial behaviour [Unknown]
  - Apathy [Unknown]
  - Catatonia [Unknown]

NARRATIVE: CASE EVENT DATE: 20190101
